FAERS Safety Report 8281684-7 (Version None)
Quarter: 2012Q2

REPORT INFORMATION
  Report Type: 
  Country: None (occurrence: None)
  Receive Date: 20120410
  Receipt Date: 20120328
  Transmission Date: 20120825
  Serious: Yes (Other)
  Sender: FDA-Public Use
  Company Number: 2012040008

PATIENT
  Age: 70 Year
  Sex: Female

DRUGS (5)
  1. LOSARTAN POTASSIUM [Suspect]
     Indication: AORTIC VALVE REPLACEMENT
  2. TORSEMIDE [Suspect]
     Indication: AORTIC VALVE REPLACEMENT
  3. PHENPROCOUMON (PHENPROCOUMON) [Suspect]
     Indication: AORTIC VALVE REPLACEMENT
  4. BISOPROLOL FUMARATE [Suspect]
  5. AMIODARONE HCL [Suspect]
     Indication: AORTIC VALVE REPLACEMENT

REACTIONS (3)
  - IMPAIRED HEALING [None]
  - CUTANEOUS LUPUS ERYTHEMATOSUS [None]
  - DISEASE RECURRENCE [None]
